FAERS Safety Report 6510445-1 (Version None)
Quarter: 2009Q4

REPORT INFORMATION
  Report Type: 
  Country: None (occurrence: None)
  Receive Date: 20091221
  Receipt Date: 20091221
  Transmission Date: 20100525
  Serious: No
  Sender: FDA-Public Use
  Company Number: None

PATIENT
  Sex: Female
  Weight: 63.5036 kg

DRUGS (1)
  1. ANGELIQ [Suspect]
     Indication: MENOPAUSE
     Dosage: 1 TAB NIGHTLY PO
     Route: 048
     Dates: start: 20081101, end: 20091216

REACTIONS (3)
  - BREAST INJURY [None]
  - BREAST MASS [None]
  - BREAST TENDERNESS [None]
